FAERS Safety Report 9507538 (Version 3)
Quarter: 2013Q4

REPORT INFORMATION
  Report Type: Spontaneous
  Country: US (occurrence: US)
  Receive Date: 20130909
  Receipt Date: 20131203
  Transmission Date: 20140711
  Serious: Yes (Other)
  Sender: FDA-Public Use
  Company Number: US-ASTELLAS-2013US009363

PATIENT
  Age: 21 Year
  Sex: Male

DRUGS (4)
  1. VESICARE [Suspect]
     Indication: URINARY INCONTINENCE
     Dosage: 10 MG, UID/QD
     Route: 048
     Dates: start: 201304
  2. VESICARE [Suspect]
     Indication: BLADDER SPASM
     Dosage: 10 MG, BID
     Route: 048
     Dates: start: 201301, end: 201303
  3. BOTOX [Concomitant]
     Indication: PRODUCT USED FOR UNKNOWN INDICATION
     Dosage: UNK
     Route: 042
  4. UNSPECIFIED MEDICATION [Concomitant]
     Indication: PRODUCT USED FOR UNKNOWN INDICATION
     Dosage: UNK
     Route: 065

REACTIONS (3)
  - Inappropriate schedule of drug administration [Unknown]
  - Overdose [Unknown]
  - Bladder spasm [Recovering/Resolving]
